FAERS Safety Report 10444560 (Version 1)
Quarter: 2014Q3

REPORT INFORMATION
  Report Type: Spontaneous
  Country: GB (occurrence: GB)
  Receive Date: 20140910
  Receipt Date: 20140910
  Transmission Date: 20150326
  Serious: Yes (Hospitalization)
  Sender: FDA-Public Use
  Company Number: GB-TEVA-506205ISR

PATIENT
  Age: 70 Year
  Sex: Female

DRUGS (17)
  1. FUROSEMIDE. [Suspect]
     Active Substance: FUROSEMIDE
     Route: 048
     Dates: end: 20120623
  2. HYDROCORTISONE. [Concomitant]
     Active Substance: HYDROCORTISONE
     Dosage: 20MG IN THE MORNING AND 10MG IN THE EVENING.
  3. RANITIDINE [Concomitant]
     Active Substance: RANITIDINE\RANITIDINE HYDROCHLORIDE
  4. SIMVASTATIN. [Concomitant]
     Active Substance: SIMVASTATIN
     Dosage: TAKEN AT NIGHT.
  5. FOLIC ACID. [Concomitant]
     Active Substance: FOLIC ACID
     Dosage: 5MG ONCE A DAY EXCEPT DAY OF METHOTREXATE
  6. METHOTREXATE [Concomitant]
     Active Substance: METHOTREXATE
  7. PETHIDINE [Suspect]
     Active Substance: MEPERIDINE
     Route: 048
     Dates: end: 20120623
  8. LANSOPRAZOLE. [Concomitant]
     Active Substance: LANSOPRAZOLE
  9. DOSULEPIN HYDROCHLORIDE [Concomitant]
     Active Substance: DOTHIEPIN HYDROCHLORIDE
     Dosage: TAKEN AT NIGHT.
  10. FLUOXETINE [Concomitant]
     Active Substance: FLUOXETINE\FLUOXETINE HYDROCHLORIDE
  11. TEMAZEPAM. [Concomitant]
     Active Substance: TEMAZEPAM
     Dosage: TAKEN AT NIGHT.
  12. NEBIVOLOL [Concomitant]
     Active Substance: NEBIVOLOL
  13. PREDNISOLONE. [Concomitant]
     Active Substance: PREDNISOLONE
  14. RAMIPRIL. [Suspect]
     Active Substance: RAMIPRIL
     Route: 048
     Dates: end: 20120623
  15. ASPIRIN. [Concomitant]
     Active Substance: ASPIRIN
     Dosage: TAKEN IN THE MORNING.
  16. ALENDRONIC ACID [Concomitant]
     Active Substance: ALENDRONIC ACID
     Dosage: 70MG WEEKLY.
  17. PREGABALIN. [Concomitant]
     Active Substance: PREGABALIN
     Dates: end: 20120623

REACTIONS (12)
  - Toxicity to various agents [Recovered/Resolved]
  - Constipation [Unknown]
  - Addison^s disease [Unknown]
  - Malaise [Unknown]
  - Sepsis [Unknown]
  - Proctalgia [Unknown]
  - Dyspnoea [Unknown]
  - Renal failure acute [Recovered/Resolved]
  - Tachycardia [Unknown]
  - Pneumonia [Unknown]
  - Hypotension [Unknown]
  - Lower respiratory tract infection [Unknown]

NARRATIVE: CASE EVENT DATE: 20120623
